FAERS Safety Report 12649800 (Version 1)
Quarter: 2016Q3

REPORT INFORMATION
  Report Type: Spontaneous
  Country: GB (occurrence: GB)
  Receive Date: 20160812
  Receipt Date: 20160812
  Transmission Date: 20161109
  Serious: Yes (Life-Threatening)
  Sender: FDA-Public Use
  Company Number: GB-ASTRAZENECA-2016SE85387

PATIENT
  Age: 46 Year
  Sex: Female
  Weight: 98 kg

DRUGS (7)
  1. MIRTAZAPINE. [Concomitant]
     Active Substance: MIRTAZAPINE
  2. METFORMIN [Concomitant]
     Active Substance: METFORMIN HYDROCHLORIDE
  3. ATORVASTATIN [Concomitant]
     Active Substance: ATORVASTATIN
  4. DAPAGLIFLOZIN [Suspect]
     Active Substance: DAPAGLIFLOZIN
     Indication: DIABETES MELLITUS INADEQUATE CONTROL
     Route: 048
     Dates: start: 20160101, end: 20160728
  5. OLMESARTAN [Concomitant]
     Active Substance: OLMESARTAN
  6. SODIUM VALPROATE [Concomitant]
     Active Substance: VALPROATE SODIUM
  7. LANTUS [Concomitant]
     Active Substance: INSULIN GLARGINE
     Dosage: 100.0IU UNKNOWN

REACTIONS (2)
  - Pancreatitis acute [Unknown]
  - Diabetic ketoacidosis [Recovered/Resolved]

NARRATIVE: CASE EVENT DATE: 20160726
